FAERS Safety Report 6983786-1 (Version None)
Quarter: 2010Q3

REPORT INFORMATION
  Report Type: 
  Country: None (occurrence: None)
  Receive Date: 20100914
  Receipt Date: 20090202
  Transmission Date: 20110219
  Serious: Yes (Hospitalization)
  Sender: FDA-Public Use
  Company Number: US-WYE-H08065909

PATIENT
  Age: 73 Year
  Sex: Female
  Weight: 70.37 kg

DRUGS (2)
  1. ADVIL LIQUI-GELS [Suspect]
     Indication: INFLAMMATION
     Route: 048
     Dates: start: 20080501, end: 20080529
  2. TRIAMTERENE AND HYDROCHLOROTHIAZIDE [Concomitant]
     Indication: HYPERTENSION
     Route: 048
     Dates: start: 20050101

REACTIONS (2)
  - OVERDOSE [None]
  - PALPITATIONS [None]
